FAERS Safety Report 5750452-X (Version None)
Quarter: 2008Q2

REPORT INFORMATION
  Report Type: 
  Country: None (occurrence: None)
  Receive Date: 20080528
  Receipt Date: 20070820
  Transmission Date: 20081010
  Serious: No
  Sender: FDA-Public Use
  Company Number: US-KINGPHARMUSA00001-K200701059

PATIENT

DRUGS (5)
  1. AVINZA [Suspect]
     Indication: PAIN
     Dosage: 90 MG, QD
     Route: 048
     Dates: start: 20070601, end: 20070701
  2. AVINZA [Suspect]
     Dosage: 120 MG, QD
     Route: 048
     Dates: start: 20070701, end: 20070801
  3. PAXIL [Concomitant]
     Indication: DEPRESSION
     Dosage: 20 TO 40 MG, QD
     Route: 048
  4. ANTIHYPERTENSIVES [Concomitant]
     Indication: BLOOD PRESSURE
     Dosage: UNK, UNK
  5. NEURONTIN [Concomitant]
     Indication: PAIN IN EXTREMITY
     Dosage: UNK, QD

REACTIONS (7)
  - ABDOMINAL PAIN UPPER [None]
  - BREAKTHROUGH PAIN [None]
  - CONSTIPATION [None]
  - DRUG EFFECT DECREASED [None]
  - EATING DISORDER [None]
  - GASTRIC DISORDER [None]
  - MIGRAINE [None]
